FAERS Safety Report 21869080 (Version 1)
Quarter: 2023Q1

REPORT INFORMATION
  Report Type: Other
  Country: FR (occurrence: FR)
  Receive Date: 20230117
  Receipt Date: 20230117
  Transmission Date: 20230418
  Serious: Yes (Life-Threatening)
  Sender: FDA-Public Use
  Company Number: None

PATIENT

DRUGS (3)
  1. IRBESARTAN [Suspect]
     Active Substance: IRBESARTAN
     Indication: Hypertension
     Dosage: 150 MILLIGRAM, QD
     Route: 048
     Dates: end: 20221012
  2. METFORMIN [Suspect]
     Active Substance: METFORMIN HYDROCHLORIDE
     Indication: Type 2 diabetes mellitus
     Dosage: 3000 MILLIGRAM, QD
     Route: 048
     Dates: end: 20221012
  3. IBUPROFEN [Suspect]
     Active Substance: IBUPROFEN
     Indication: Ligament sprain
     Dosage: UNK
     Route: 048
     Dates: start: 20220921, end: 20221012

REACTIONS (4)
  - Gastric ulcer [Recovering/Resolving]
  - Haematemesis [Recovered/Resolved]
  - Shock haemorrhagic [Recovered/Resolved]
  - Acute kidney injury [Recovered/Resolved]

NARRATIVE: CASE EVENT DATE: 20221012
